FAERS Safety Report 16919895 (Version 2)
Quarter: 2019Q4

REPORT INFORMATION
  Report Type: Spontaneous
  Country: US (occurrence: US)
  Receive Date: 20191015
  Receipt Date: 20191023
  Transmission Date: 20200122
  Serious: Yes (Other)
  Sender: FDA-Public Use
  Company Number: US-HORIZON-DUE-0565-2019

PATIENT
  Age: 52 Year
  Sex: Male

DRUGS (5)
  1. HYDROCODONE [Concomitant]
     Active Substance: HYDROCODONE
     Dosage: 5/325 MG
  2. AMLODIPINE [Concomitant]
     Active Substance: AMLODIPINE BESYLATE
  3. TESTOSTERONE. [Concomitant]
     Active Substance: TESTOSTERONE
  4. DUEXIS [Suspect]
     Active Substance: FAMOTIDINE\IBUPROFEN
     Indication: PLANTAR FASCIITIS
     Dosage: 1 TABLET AS NEEDED
  5. OLMESARTAN [Concomitant]
     Active Substance: OLMESARTAN

REACTIONS (4)
  - Ankle operation [Unknown]
  - Off label use [Unknown]
  - Ankle fracture [Unknown]
  - Therapy cessation [Unknown]
